FAERS Safety Report 18781607 (Version 1)
Quarter: 2021Q1

REPORT INFORMATION
  Report Type: Spontaneous
  Country: US (occurrence: US)
  Receive Date: 20210125
  Receipt Date: 20210125
  Transmission Date: 20210419
  Serious: Yes (Other)
  Sender: FDA-Public Use
  Company Number: None

PATIENT
  Age: 66 Year
  Sex: Female
  Weight: 80.55 kg

DRUGS (8)
  1. CATALENT PHARMA, ALBUTEROL SULFATE INHALATION AEROSOL 90 MCG ACTUATION [Suspect]
     Active Substance: ALBUTEROL SULFATE
     Indication: ASTHMA
     Dosage: ?          OTHER STRENGTH:90MCG (9GM);QUANTITY:2 PUFF(S);?
     Route: 055
     Dates: start: 20200101, end: 20210101
  2. FLECAINIDE 50MG [Concomitant]
     Active Substance: FLECAINIDE
  3. ASPIRIN 81MG [Concomitant]
     Active Substance: ASPIRIN
  4. ALBUTEROL SULFATE. [Concomitant]
     Active Substance: ALBUTEROL SULFATE
  5. ATORVASTATIN 40MG [Concomitant]
     Active Substance: ATORVASTATIN
  6. OXYCODONE 10MG [Concomitant]
     Active Substance: OXYCODONE
  7. METOPROLOL 25MG [Concomitant]
     Active Substance: METOPROLOL
  8. AMBIEN [Concomitant]
     Active Substance: ZOLPIDEM TARTRATE

REACTIONS (5)
  - Device occlusion [None]
  - Impaired quality of life [None]
  - Wheezing [None]
  - Device malfunction [None]
  - Dyspnoea [None]

NARRATIVE: CASE EVENT DATE: 20200701
